FAERS Safety Report 4553314-9 (Version None)
Quarter: 2005Q1

REPORT INFORMATION
  Report Type: 
  Country: None (occurrence: None)
  Receive Date: 20050112
  Receipt Date: 20050105
  Transmission Date: 20050727
  Serious: Yes (Hospitalization)
  Sender: FDA-Public Use
  Company Number: 2005006557

PATIENT
  Age: 79 Year
  Sex: Male

DRUGS (11)
  1. SPIRONOLACTONE [Suspect]
     Indication: ILL-DEFINED DISORDER
     Dosage: 25 MG (25 MG, QD), ORAL
     Route: 048
  2. HYDROCHLOROTHIAZIDE [Suspect]
     Indication: ILL-DEFINED DISORDER
     Dosage: 25 MG (25 MG, QD), ORAL
     Route: 048
  3. SIMVASTATIN [Concomitant]
  4. DIPYRIDAMOLE [Concomitant]
  5. CANDESARTAN (CANDESARTAN) [Concomitant]
  6. CARBASALATE (CARBASALATE) [Concomitant]
  7. OMEPRAZOLE [Concomitant]
  8. TAMSULOSIN (TAMSULOSIN) [Concomitant]
  9. BACTRIM [Concomitant]
  10. DOMPERIDONE (DOMPERIDONE) [Concomitant]
  11. ATENOLOL [Concomitant]

REACTIONS (7)
  - BLADDER DISORDER [None]
  - CEREBRAL ISCHAEMIA [None]
  - CEREBROVASCULAR ACCIDENT [None]
  - HYPERTENSION [None]
  - HYPONATRAEMIA [None]
  - MALAISE [None]
  - POLYDIPSIA [None]
